FAERS Safety Report 18381221 (Version 1)
Quarter: 2020Q4

REPORT INFORMATION
  Report Type: Spontaneous
  Country: US (occurrence: US)
  Receive Date: 20201013
  Receipt Date: 20201013
  Transmission Date: 20210114
  Serious: Yes (Other)
  Sender: FDA-Public Use
  Company Number: None

PATIENT
  Age: 40 Year
  Sex: Female
  Weight: 56.25 kg

DRUGS (2)
  1. ESCITALOPRAM 10MG TABLETS [Suspect]
     Active Substance: ESCITALOPRAM OXALATE
     Indication: ADJUSTMENT DISORDER WITH DEPRESSED MOOD
     Route: 048
     Dates: start: 20200930, end: 20201011
  2. CRANBERRY PILL [Concomitant]
     Active Substance: CRANBERRY

REACTIONS (4)
  - Pyrexia [None]
  - Vomiting [None]
  - Suicidal ideation [None]
  - Palpitations [None]

NARRATIVE: CASE EVENT DATE: 20201011
